FAERS Safety Report 17208446 (Version 1)
Quarter: 2019Q4

REPORT INFORMATION
  Report Type: Spontaneous
  Country: DE (occurrence: DE)
  Receive Date: 20191227
  Receipt Date: 20191227
  Transmission Date: 20200122
  Serious: Yes (Other)
  Sender: FDA-Public Use
  Company Number: DE-ASTELLAS-2019US051132

PATIENT
  Sex: Male

DRUGS (1)
  1. XTANDI [Suspect]
     Active Substance: ENZALUTAMIDE
     Indication: PRODUCT USED FOR UNKNOWN INDICATION
     Dosage: 160 MG (4X40 MG), UNKNOWN FREQ.
     Route: 065
     Dates: start: 201907

REACTIONS (2)
  - Sinobronchitis [Unknown]
  - Otitis media [Unknown]

NARRATIVE: CASE EVENT DATE: 201912
